FAERS Safety Report 6180140-X (Version None)
Quarter: 2009Q2

REPORT INFORMATION
  Report Type: 
  Country: None (occurrence: None)
  Receive Date: 20090505
  Receipt Date: 20090420
  Transmission Date: 20091009
  Serious: Yes (Death, Other)
  Sender: FDA-Public Use
  Company Number: US-BAYER-200911157BCC

PATIENT
  Sex: Male

DRUGS (1)
  1. ALKA-SELTZER EFFERVESCENT TABLETS ORIGINAL [Suspect]
     Indication: DYSPEPSIA
     Dosage: BOTTLLE COUNT UNKNOWN
     Dates: start: 19890101

REACTIONS (1)
  - MYOCARDIAL INFARCTION [None]
